FAERS Safety Report 7679761-4 (Version None)
Quarter: 2011Q3

REPORT INFORMATION
  Report Type: 
  Country: None (occurrence: None)
  Receive Date: 20110812
  Receipt Date: 20110802
  Transmission Date: 20111222
  Serious: No
  Sender: FDA-Public Use
  Company Number: US-JNJFOC-20110802183

PATIENT
  Sex: Male
  Weight: 104.33 kg

DRUGS (5)
  1. AMBIEN [Concomitant]
     Indication: SLEEP DISORDER
     Dosage: HOUR SLEEP
     Route: 048
  2. INVEGA [Suspect]
     Indication: SCHIZOPHRENIA
     Route: 048
  3. ENBREL [Concomitant]
     Indication: PSORIASIS
     Route: 058
  4. LEXAPRO [Concomitant]
     Indication: DEPRESSION
     Route: 048
     Dates: start: 20070101
  5. ABILIFY [Concomitant]
     Indication: SCHIZOPHRENIA
     Route: 048
     Dates: start: 20060101

REACTIONS (3)
  - PRODUCT QUALITY ISSUE [None]
  - DRUG DISPENSING ERROR [None]
  - EXPIRED DRUG ADMINISTERED [None]
